FAERS Safety Report 6573311-1 (Version None)
Quarter: 2010Q1

REPORT INFORMATION
  Report Type: 
  Country: None (occurrence: None)
  Receive Date: 20100208
  Receipt Date: 20100128
  Transmission Date: 20100710
  Serious: Yes (Death, Hospitalization)
  Sender: FDA-Public Use
  Company Number: FR-PFIZER INC-2009195802

PATIENT
  Age: 70 Year
  Sex: Female
  Weight: 43 kg

DRUGS (3)
  1. SUNITINIB MALATE [Suspect]
     Indication: BREAST CANCER
     Dosage: 37.5 MG, 1X/DAY
     Route: 048
     Dates: start: 20090318, end: 20090328
  2. SUNITINIB MALATE [Suspect]
     Dosage: UNK
     Dates: start: 20090415
  3. CAPECITABINE [Suspect]
     Indication: BREAST CANCER
     Dosage: 800 MG, 2X/DAY, DAY 1-14 EVERY 3 WEEKS
     Route: 048
     Dates: start: 20080721, end: 20090220

REACTIONS (2)
  - PNEUMONIA [None]
  - SHOCK HAEMORRHAGIC [None]
